FAERS Safety Report 16794940 (Version 1)
Quarter: 2019Q4

REPORT INFORMATION
  Report Type: Spontaneous
  Country: US (occurrence: US)
  Receive Date: 20190910
  Receipt Date: 20190910
  Transmission Date: 20200122
  Serious: Yes (Hospitalization)
  Sender: FDA-Public Use
  Company Number: None

PATIENT
  Age: 40 Year
  Sex: Male

DRUGS (12)
  1. MYCOPHENOLATE [Suspect]
     Active Substance: MYCOPHENOLIC ACID
     Indication: TRANSPLANT
     Route: 048
     Dates: start: 20190809
  2. ATORVASTATIN [Concomitant]
     Active Substance: ATORVASTATIN
  3. CALC ACETATE [Concomitant]
     Active Substance: CALCIUM ACETATE
  4. OMEPRAZOLE. [Concomitant]
     Active Substance: OMEPRAZOLE
  5. TRADJENTA [Concomitant]
     Active Substance: LINAGLIPTIN
  6. DOXAZOSIN [Concomitant]
     Active Substance: DOXAZOSIN MESYLATE
  7. METOPROLOL TARTRATE. [Concomitant]
     Active Substance: METOPROLOL TARTRATE
  8. NIFEDIPINE. [Concomitant]
     Active Substance: NIFEDIPINE
  9. VALGANCICLOV [Concomitant]
  10. ENVARSUS XR [Concomitant]
     Active Substance: TACROLIMUS
  11. PREDNISONE. [Concomitant]
     Active Substance: PREDNISONE
  12. HYDRALAZINE [Concomitant]
     Active Substance: HYDRALAZINE HYDROCHLORIDE

REACTIONS (1)
  - Unevaluable event [None]

NARRATIVE: CASE EVENT DATE: 20190902
